FAERS Safety Report 8576181-5 (Version None)
Quarter: 2012Q3

REPORT INFORMATION
  Report Type: 
  Country: None (occurrence: None)
  Receive Date: 20120807
  Receipt Date: 20120731
  Transmission Date: 20120928
  Serious: Yes (Hospitalization)
  Sender: FDA-Public Use
  Company Number: FR-PFIZER INC-2012189147

PATIENT
  Age: 2 Year
  Sex: Female

DRUGS (9)
  1. TAZOBACTAM [Suspect]
     Indication: BRONCHITIS
     Dosage: UNK
     Dates: start: 20120710, end: 20120711
  2. FOSFOCINE [Concomitant]
     Dosage: UNK
     Dates: start: 20120601
  3. AMIKACIN [Suspect]
     Indication: BRONCHITIS
     Dosage: UNK
     Dates: start: 20120710, end: 20120718
  4. AMOXICILLIN TRIHYDRATE [Concomitant]
     Dosage: UNK
     Dates: start: 20120701
  5. VANCOMYCIN HCL [Suspect]
     Indication: BRONCHITIS
     Dosage: UNK
     Dates: start: 20120712, end: 20120718
  6. CLARITHROMYCIN [Concomitant]
     Dosage: UNK
     Dates: start: 20120701
  7. CLAFORAN [Concomitant]
     Dosage: UNK
     Dates: start: 20120601
  8. SOLU-MEDROL [Concomitant]
     Dosage: UNK
     Dates: start: 20120601
  9. AUGMENTIN '500' [Suspect]
     Indication: PHARYNGEAL ABSCESS
     Dosage: UNK
     Dates: start: 20120630, end: 20120710

REACTIONS (3)
  - GAMMA-GLUTAMYLTRANSFERASE INCREASED [None]
  - HEPATOMEGALY [None]
  - BLOOD ALKALINE PHOSPHATASE INCREASED [None]
